FAERS Safety Report 8730322 (Version 3)
Quarter: 2012Q4

REPORT INFORMATION
  Report Type: 
  Country: US (occurrence: US)
  Receive Date: 20120817
  Receipt Date: 20121011
  Transmission Date: 20130627
  Serious: No
  Sender: FDA-Public Use
  Company Number: US-ASTRAZENECA-2006UW09724

PATIENT
  Age: 85 Year
  Sex: Female
  Weight: 63.5 kg

DRUGS (12)
  1. TOPROL XL [Suspect]
     Indication: HYPERTENSION
     Route: 048
  2. TOPROL XL [Suspect]
     Indication: BLOOD PRESSURE
     Route: 048
  3. TOPROL XL [Suspect]
     Indication: HYPERTENSION
     Route: 048
     Dates: start: 200605
  4. TOPROL XL [Suspect]
     Indication: BLOOD PRESSURE
     Route: 048
     Dates: start: 200605
  5. TOPROL XL [Suspect]
     Indication: HYPERTENSION
     Route: 048
  6. TOPROL XL [Suspect]
     Indication: BLOOD PRESSURE
     Route: 048
  7. HCTZ [Concomitant]
  8. POTASSIUM [Concomitant]
  9. SYNTHROID [Concomitant]
  10. MVI [Concomitant]
  11. TRIAMTERENE [Concomitant]
  12. LORAZEPAM [Concomitant]

REACTIONS (4)
  - Hypertension [Unknown]
  - Blood pressure fluctuation [Unknown]
  - Tinnitus [Unknown]
  - Drug ineffective [Unknown]
